FAERS Safety Report 23549989 (Version 1)
Quarter: 2024Q1

REPORT INFORMATION
  Report Type: Spontaneous
  Country: US (occurrence: None)
  Receive Date: 20240220
  Receipt Date: 20240220
  Transmission Date: 20240410
  Serious: Yes (Disabling, Other)
  Sender: FDA-Public Use
  Company Number: None

PATIENT
  Age: 49 Year
  Sex: Female
  Weight: 54 kg

DRUGS (1)
  1. RINVOQ [Suspect]
     Active Substance: UPADACITINIB
     Indication: Psoriatic arthropathy
     Dates: start: 20230120, end: 20240201

REACTIONS (11)
  - Skin cancer [None]
  - Therapy cessation [None]
  - Gait disturbance [None]
  - Asthenia [None]
  - Neuralgia [None]
  - Colitis [None]
  - Fatigue [None]
  - General physical health deterioration [None]
  - Job dissatisfaction [None]
  - Multiple sclerosis [None]
  - Fall [None]

NARRATIVE: CASE EVENT DATE: 20240130
